FAERS Safety Report 5190765-6 (Version None)
Quarter: 2006Q4

REPORT INFORMATION
  Report Type: 
  Country: None (occurrence: None)
  Receive Date: 20061222
  Receipt Date: 20061214
  Transmission Date: 20070319
  Serious: Yes (Life-Threatening)
  Sender: FDA-Public Use
  Company Number: JP-ROCHE-475596

PATIENT
  Age: 73 Year
  Sex: Female

DRUGS (3)
  1. XELODA [Suspect]
     Indication: BREAST CANCER
     Dosage: TWO WEEKS ADMINISTRATION FOLLOWED BY ONE WEEK REST.
     Route: 048
     Dates: start: 20061108, end: 20061122
  2. MEDROXYPROGESTERONE ACETATE [Concomitant]
     Indication: BREAST CANCER
     Dosage: TWO WEEKS ADMINISTRATION FOLLOWED BY ONE WEEK REST.
     Route: 048
     Dates: start: 20061108
  3. ENDOXAN [Concomitant]
     Indication: BREAST CANCER
     Dosage: TWO WEEKS ADMINISTRATION FOLLOWED BY ONE WEEK REST.
     Route: 048
     Dates: start: 20061108

REACTIONS (2)
  - CYSTITIS HAEMORRHAGIC [None]
  - INTERSTITIAL LUNG DISEASE [None]
